FAERS Safety Report 14629015 (Version 7)
Quarter: 2020Q2

REPORT INFORMATION
  Report Type: Report from Study
  Country: US (occurrence: US)
  Receive Date: 20180313
  Receipt Date: 20200623
  Transmission Date: 20200713
  Serious: Yes (Hospitalization)
  Sender: FDA-Public Use
  Company Number: US-ROCHE-2082089

PATIENT
  Age: 39 Year
  Sex: Male
  Weight: 98.2 kg

DRUGS (49)
  1. OCRELIZUMAB. [Suspect]
     Active Substance: OCRELIZUMAB
     Dosage: DAY 15 CYCLE 5, WEEK 2
     Route: 042
     Dates: start: 20140923, end: 20140923
  2. PREDNISONE. [Concomitant]
     Active Substance: PREDNISONE
     Indication: INFLAMMATION
  3. IBUPROFEN. [Concomitant]
     Active Substance: IBUPROFEN
     Indication: UPPER RESPIRATORY TRACT INFECTION
     Route: 065
     Dates: start: 20171128, end: 20171201
  4. ATORVASTATIN [Concomitant]
     Active Substance: ATORVASTATIN
     Route: 065
     Dates: start: 20191006
  5. ONDANSETRON [Concomitant]
     Active Substance: ONDANSETRON
     Route: 065
     Dates: start: 20191006, end: 20191006
  6. BACTRIM [Concomitant]
     Active Substance: SULFAMETHOXAZOLE\TRIMETHOPRIM
     Route: 065
     Dates: start: 20180820, end: 20180829
  7. BENZONATATE. [Concomitant]
     Active Substance: BENZONATATE
     Indication: INFLUENZA
     Route: 065
     Dates: start: 20180223, end: 20180304
  8. IBUPROFEN. [Concomitant]
     Active Substance: IBUPROFEN
     Indication: FOOT FRACTURE
     Route: 065
     Dates: start: 20161212
  9. IBUPROFEN. [Concomitant]
     Active Substance: IBUPROFEN
     Route: 065
     Dates: start: 20190122
  10. IBUPROFEN. [Concomitant]
     Active Substance: IBUPROFEN
     Route: 065
     Dates: start: 20200216
  11. OMNIPAQUE [Concomitant]
     Active Substance: IOHEXOL
     Route: 065
     Dates: start: 20191006, end: 20191006
  12. OCRELIZUMAB. [Suspect]
     Active Substance: OCRELIZUMAB
     Dosage: CYCLE 3 WEEK 48
     Route: 042
     Dates: start: 20130918, end: 20130918
  13. OCRELIZUMAB. [Suspect]
     Active Substance: OCRELIZUMAB
     Dosage: OLE-WEEK 48 CYCLE 7
     Route: 042
     Dates: start: 20150812, end: 20150812
  14. OCRELIZUMAB. [Suspect]
     Active Substance: OCRELIZUMAB
     Dosage: OLE-WEEK 96, CYCLE 9
     Route: 042
     Dates: start: 20160708, end: 20160708
  15. OCRELIZUMAB. [Suspect]
     Active Substance: OCRELIZUMAB
     Dosage: OLE-WEEK 144, CYCLE 11
     Route: 042
     Dates: start: 20170614, end: 20170614
  16. PSEUDOEPHEDRINE. [Concomitant]
     Active Substance: PSEUDOEPHEDRINE HYDROCHLORIDE
     Indication: UPPER RESPIRATORY TRACT INFECTION
     Route: 065
     Dates: start: 20180213, end: 20180217
  17. ASPIRIN [ACETYLSALICYLIC ACID] [Concomitant]
     Active Substance: ASPIRIN
     Route: 065
  18. OCRELIZUMAB. [Suspect]
     Active Substance: OCRELIZUMAB
     Dosage: OLE-WEEK 72, CYCLE 8
     Route: 042
     Dates: start: 20160202, end: 20160202
  19. OCRELIZUMAB. [Suspect]
     Active Substance: OCRELIZUMAB
     Dosage: OLE-WEEK 120, CYCLE 10
     Route: 042
     Dates: start: 20161222, end: 20161222
  20. OCRELIZUMAB. [Suspect]
     Active Substance: OCRELIZUMAB
     Dosage: OLE-WEEK 168, CYCLE 12?SUBSEQUENT DOSES: 16/MAY/2018 (OLE-WEEK 192, LOT NUMBER: 1156605), 31/OCT/201
     Route: 042
     Dates: start: 20171213, end: 20171213
  21. MOBIC [Concomitant]
     Active Substance: MELOXICAM
     Indication: PAIN
     Route: 065
     Dates: start: 20141204, end: 2015
  22. ALPRAZOLAM. [Concomitant]
     Active Substance: ALPRAZOLAM
     Indication: ANXIETY
     Route: 065
     Dates: start: 2015, end: 201901
  23. OCRELIZUMAB. [Suspect]
     Active Substance: OCRELIZUMAB
     Indication: RELAPSING-REMITTING MULTIPLE SCLEROSIS
     Dosage: DAY 1 CYCLE 1 WEEK 1?DUAL INFUSIONS ON DAYS 1 AND 15 FOR THE FIRST DOSE AND AS A SINGLE INFUSION FOR
     Route: 042
     Dates: start: 20121018, end: 20121018
  24. OCRELIZUMAB. [Suspect]
     Active Substance: OCRELIZUMAB
     Dosage: OLE-WEEK 24, CYCLE 6
     Route: 042
     Dates: start: 20150223, end: 20150223
  25. METHYLPREDNISOLONE. [Concomitant]
     Active Substance: METHYLPREDNISOLONE
     Dosage: 31/OCT/2012, 03/APR/2013, 18/SEP/2013, 05/MAR/2014, 08/SEP/2014, 23/SEP/2014, 23/FEB/2015, 12/AUG/20
     Route: 065
  26. IBUPROFEN. [Concomitant]
     Active Substance: IBUPROFEN
     Route: 065
     Dates: start: 20180213
  27. IBUPROFEN. [Concomitant]
     Active Substance: IBUPROFEN
     Route: 065
     Dates: start: 20190120
  28. MORPHINE [Concomitant]
     Active Substance: MORPHINE
     Route: 065
     Dates: start: 20191006, end: 20191006
  29. TESSALON [Concomitant]
     Active Substance: BENZONATATE
     Indication: UPPER RESPIRATORY TRACT INFECTION
     Route: 065
     Dates: start: 20190216, end: 20190220
  30. OCRELIZUMAB. [Suspect]
     Active Substance: OCRELIZUMAB
     Dosage: CYCLE 4 WEEK 72
     Route: 042
     Dates: start: 20140305, end: 20140305
  31. PLACEBO [Suspect]
     Active Substance: UNSPECIFIED INGREDIENT
     Indication: RELAPSING-REMITTING MULTIPLE SCLEROSIS
     Dosage: SUBSEQUENT DOSE: 20/AUG/2014?LAST DOSE PRIOR TO SAE: 08/SEP/2014
     Route: 058
     Dates: start: 20121018
  32. BENADRYL [Concomitant]
     Active Substance: DIPHENHYDRAMINE HYDROCHLORIDE
     Route: 065
     Dates: start: 20130403, end: 20130403
  33. NITROGLYCERIN. [Concomitant]
     Active Substance: NITROGLYCERIN
     Route: 065
     Dates: start: 20191006, end: 20191006
  34. INFLUENZA VACCINE [Concomitant]
     Active Substance: INFLUENZA VIRUS VACCINE
     Dosage: 1 VIAL
     Route: 065
     Dates: start: 20191121, end: 20191121
  35. ADDERALL [Concomitant]
     Active Substance: AMPHETAMINE ASPARTATE\AMPHETAMINE SULFATE\DEXTROAMPHETAMINE SACCHARATE\DEXTROAMPHETAMINE SULFATE
     Indication: ATTENTION DEFICIT HYPERACTIVITY DISORDER
     Route: 065
     Dates: start: 2015
  36. DEXAMETHASONE. [Concomitant]
     Active Substance: DEXAMETHASONE
     Indication: MUSCULOSKELETAL PAIN
     Route: 065
     Dates: start: 20181106, end: 20181220
  37. ADVIL [IBUPROFEN] [Concomitant]
     Active Substance: IBUPROFEN
     Indication: MUSCULOSKELETAL PAIN
  38. OCRELIZUMAB. [Suspect]
     Active Substance: OCRELIZUMAB
     Dosage: CYCLE 2 WEEK 24
     Route: 042
     Dates: start: 20130403, end: 20130403
  39. OCRELIZUMAB. [Suspect]
     Active Substance: OCRELIZUMAB
     Indication: RELAPSING-REMITTING MULTIPLE SCLEROSIS
     Dosage: DAY 1 CYCLE 5, WEEK 1?600 MG INTRAVENOUS (IV) AS 300 MG INFUSIONS ON DAYS 1 AND 15 FOR THE FIRST DOS
     Route: 042
     Dates: start: 20140908, end: 20140908
  40. BENADRYL [Concomitant]
     Active Substance: DIPHENHYDRAMINE HYDROCHLORIDE
     Indication: PRURITUS
     Dosage: 31/OCT/2012, 03/APR/2013, 18/SEP/2013, 05/MAR/2014, 08/SEP/2014, 23/SEP/2014, 23/FEB/2015, 12/AUG/20
     Route: 065
     Dates: start: 20121018
  41. PREDNISONE. [Concomitant]
     Active Substance: PREDNISONE
     Indication: PAIN
     Route: 065
     Dates: start: 20141204
  42. IBUPROFEN. [Concomitant]
     Active Substance: IBUPROFEN
     Indication: GASTROENTERITIS VIRAL
     Route: 065
     Dates: start: 20170811, end: 20170824
  43. ZOFRAN [Concomitant]
     Active Substance: ONDANSETRON HYDROCHLORIDE
     Indication: INFLUENZA
     Route: 065
     Dates: start: 20180221, end: 20180228
  44. ADVIL [IBUPROFEN] [Concomitant]
     Active Substance: IBUPROFEN
     Indication: NASOPHARYNGITIS
     Dosage: NEXT DOSE: 28/AUG/2018
     Route: 065
     Dates: start: 20190511, end: 20190514
  45. BENZONATATE. [Concomitant]
     Active Substance: BENZONATATE
     Indication: NASOPHARYNGITIS
     Route: 065
     Dates: start: 20170811, end: 20170824
  46. OCRELIZUMAB. [Suspect]
     Active Substance: OCRELIZUMAB
     Dosage: DAY 15 CYCLE 1 WEEK 2
     Route: 042
     Dates: start: 20121031, end: 20121031
  47. BENADRYL [Concomitant]
     Active Substance: DIPHENHYDRAMINE HYDROCHLORIDE
     Route: 065
     Dates: start: 20121018, end: 20121018
  48. TAMIFLU [Concomitant]
     Active Substance: OSELTAMIVIR PHOSPHATE
     Indication: INFLUENZA
     Route: 065
     Dates: start: 20180221, end: 20180225
  49. TESSALON [Concomitant]
     Active Substance: BENZONATATE
     Indication: COUGH
     Route: 065
     Dates: start: 20190122, end: 20190124

REACTIONS (2)
  - Atrial fibrillation [Recovered/Resolved]
  - Atrial fibrillation [Recovered/Resolved with Sequelae]

NARRATIVE: CASE EVENT DATE: 20180223
